FAERS Safety Report 4638004-6 (Version None)
Quarter: 2005Q2

REPORT INFORMATION
  Report Type: 
  Country: None (occurrence: None)
  Receive Date: 20050415
  Receipt Date: 20050328
  Transmission Date: 20051028
  Serious: Yes (Hospitalization, Other)
  Sender: FDA-Public Use
  Company Number: USA050394344

PATIENT
  Age: 55 Year
  Sex: Male
  Weight: 136 kg

DRUGS (4)
  1. HUMULIN R [Suspect]
     Indication: DIABETES MELLITUS
  2. CYMBALTA [Suspect]
     Indication: DIABETIC NEUROPATHY
     Dosage: 60 MG DAY
     Dates: start: 20050325, end: 20050326
  3. CARDIZEM CD [Concomitant]
  4. LOTENSIN [Concomitant]

REACTIONS (11)
  - ASTHENIA [None]
  - CHOLECYSTITIS [None]
  - DIABETIC NEUROPATHY [None]
  - DRY MOUTH [None]
  - FEELING ABNORMAL [None]
  - FEELING JITTERY [None]
  - HYPERHIDROSIS [None]
  - MYOCARDIAL INFARCTION [None]
  - NERVOUSNESS [None]
  - NEUROPATHIC PAIN [None]
  - TREMOR [None]
